FAERS Safety Report 18112921 (Version 1)
Quarter: 2020Q3

REPORT INFORMATION
  Report Type: Spontaneous
  Country: US (occurrence: US)
  Receive Date: 20200805
  Receipt Date: 20200805
  Transmission Date: 20201103
  Serious: Yes (Hospitalization)
  Sender: FDA-Public Use
  Company Number: None

PATIENT
  Sex: Male
  Weight: 70.3 kg

DRUGS (1)
  1. ONCASPAR [Suspect]
     Active Substance: PEGASPARGASE

REACTIONS (11)
  - Pancreatitis [None]
  - Food intolerance [None]
  - Peripancreatic fluid collection [None]
  - Body temperature increased [None]
  - Vomiting [None]
  - Chills [None]
  - Nausea [None]
  - Immunosuppression [None]
  - Localised infection [None]
  - Pulmonary embolism [None]
  - Abdominal pain [None]

NARRATIVE: CASE EVENT DATE: 20200729
